FAERS Safety Report 6810672-X (Version None)
Quarter: 2010Q2

REPORT INFORMATION
  Report Type: 
  Country: None (occurrence: None)
  Receive Date: 20100630
  Receipt Date: 20070511
  Transmission Date: 20101027
  Serious: No
  Sender: FDA-Public Use
  Company Number: US-PFIZER INC-2006143639

PATIENT
  Age: 41 Year
  Sex: Male

DRUGS (9)
  1. GLYBURIDE [Suspect]
     Indication: HYPERGLYCAEMIA
     Route: 048
     Dates: start: 20061023, end: 20061024
  2. TESTOSTERONE [Suspect]
     Indication: HERMAPHRODITISM
     Route: 062
     Dates: start: 20000101
  3. TESTOSTERONE [Suspect]
     Route: 062
  4. TRICOR [Suspect]
     Indication: HYPERTRIGLYCERIDAEMIA
     Route: 048
     Dates: start: 20060701, end: 20061029
  5. LEVOTHYROXINE SODIUM [Concomitant]
  6. NAPROSYN [Concomitant]
  7. NEURONTIN [Concomitant]
  8. BACLOFEN [Concomitant]
  9. TESTOSTERONE [Concomitant]
     Route: 050
     Dates: start: 20060801

REACTIONS (7)
  - ABDOMINAL PAIN UPPER [None]
  - BLISTER [None]
  - BLOOD GLUCOSE INCREASED [None]
  - BLOOD TRIGLYCERIDES INCREASED [None]
  - DRUG INEFFECTIVE [None]
  - GENITAL RASH [None]
  - RASH [None]
